FAERS Safety Report 5363334-2 (Version None)
Quarter: 2007Q2

REPORT INFORMATION
  Report Type: 
  Country: None (occurrence: None)
  Receive Date: 20070618
  Receipt Date: 20070607
  Transmission Date: 20071010
  Serious: Yes (Life-Threatening, Other)
  Sender: FDA-Public Use
  Company Number: GXKR2007GB04972

PATIENT
  Age: 62 Year
  Sex: Male

DRUGS (4)
  1. LORAZEPAM [Suspect]
     Indication: DEPRESSION
     Dosage: SEE IMAGE
  2. ALPRAZOLAM [Suspect]
     Indication: PANIC ATTACK
  3. TEMAZEPAM [Concomitant]
  4. FLUOXETINE [Concomitant]

REACTIONS (16)
  - ABDOMINAL INJURY [None]
  - AGITATION [None]
  - ANXIETY [None]
  - CHEST INJURY [None]
  - DELUSIONAL DISORDER, SOMATIC TYPE [None]
  - DRUG DEPENDENCE [None]
  - DRUG WITHDRAWAL SYNDROME [None]
  - EUPHORIC MOOD [None]
  - FEAR [None]
  - INJURY [None]
  - INTENTIONAL SELF-INJURY [None]
  - NECK INJURY [None]
  - PANIC ATTACK [None]
  - SLEEP DISORDER [None]
  - SUICIDE ATTEMPT [None]
  - TREATMENT NONCOMPLIANCE [None]
